FAERS Safety Report 13368155 (Version 1)
Quarter: 2017Q1

REPORT INFORMATION
  Report Type: Spontaneous
  Country: AU (occurrence: AU)
  Receive Date: 20170324
  Receipt Date: 20170324
  Transmission Date: 20170429
  Serious: Yes (Hospitalization, Other)
  Sender: FDA-Public Use
  Company Number: AU-SA-2017SA043190

PATIENT
  Age: 54 Year
  Sex: Male
  Weight: 88 kg

DRUGS (10)
  1. ACICLOVIR [Concomitant]
     Active Substance: ACYCLOVIR
  2. PREGABALIN. [Concomitant]
     Active Substance: PREGABALIN
  3. SODIUM VALPROATE [Concomitant]
     Active Substance: VALPROATE SODIUM
  4. LORATADINE. [Concomitant]
     Active Substance: LORATADINE
  5. METHYLPREDNISOLONE SODIUM SUCCINATE. [Concomitant]
     Active Substance: METHYLPREDNISOLONE SODIUM SUCCINATE
     Dosage: TAKE 05 TABLET TWICE A DAY
     Route: 048
  6. TYSABRI [Concomitant]
     Active Substance: NATALIZUMAB
     Dosage: 300 MG/15 ML
     Dates: start: 20161101
  7. METOPROLOL. [Concomitant]
     Active Substance: METOPROLOL
  8. LEMTRADA [Suspect]
     Active Substance: ALEMTUZUMAB
     Indication: RELAPSING-REMITTING MULTIPLE SCLEROSIS
     Route: 041
     Dates: start: 20161205, end: 20161209
  9. METOPROLOL. [Concomitant]
     Active Substance: METOPROLOL
     Dates: start: 201612
  10. RIVAROXABAN [Concomitant]
     Active Substance: RIVAROXABAN

REACTIONS (7)
  - Pericarditis [Recovering/Resolving]
  - Herpes zoster [Recovering/Resolving]
  - Palpitations [Recovered/Resolved]
  - Back pain [Unknown]
  - Atrial fibrillation [Recovered/Resolved]
  - Hypotension [Recovered/Resolved]
  - Chest discomfort [Recovering/Resolving]

NARRATIVE: CASE EVENT DATE: 201612
